FAERS Safety Report 20911322 (Version 6)
Quarter: 2023Q2

REPORT INFORMATION
  Report Type: Report from Study
  Country: PA (occurrence: PA)
  Receive Date: 20220603
  Receipt Date: 20230623
  Transmission Date: 20230721
  Serious: Yes (Other)
  Sender: FDA-Public Use
  Company Number: PA-NOVARTISPH-NVSC2022PA044293

PATIENT
  Age: 68 Year
  Sex: Female
  Weight: 55.329 kg

DRUGS (4)
  1. KISQALI [Suspect]
     Active Substance: RIBOCICLIB
     Indication: Breast cancer metastatic
     Dosage: 400 MG, QD
     Route: 048
     Dates: start: 20220119
  2. KISQALI [Suspect]
     Active Substance: RIBOCICLIB
     Indication: Breast cancer
     Dosage: 400 MG, QD
     Route: 048
     Dates: start: 202201
  3. KISQALI [Suspect]
     Active Substance: RIBOCICLIB
     Dosage: 400 MG, QD
     Route: 048
     Dates: start: 2022
  4. ANASTROZOLE [Suspect]
     Active Substance: ANASTROZOLE
     Indication: Product used for unknown indication
     Dosage: UNK
     Route: 065

REACTIONS (28)
  - Pulmonary mass [Recovering/Resolving]
  - Asphyxia [Unknown]
  - Metastases to lung [Recovering/Resolving]
  - Metastases to pelvis [Unknown]
  - Haemoglobin decreased [Recovering/Resolving]
  - Myalgia [Unknown]
  - Decreased immune responsiveness [Unknown]
  - Pain [Recovering/Resolving]
  - Pain in extremity [Unknown]
  - Feeling abnormal [Unknown]
  - Hypersensitivity [Unknown]
  - Anxiety [Unknown]
  - Lip swelling [Unknown]
  - Movement disorder [Unknown]
  - White blood cell count increased [Unknown]
  - Decreased appetite [Unknown]
  - Rhinorrhoea [Unknown]
  - Temperature intolerance [Unknown]
  - COVID-19 [Unknown]
  - Pyrexia [Unknown]
  - Weight decreased [Recovering/Resolving]
  - Unevaluable event [Unknown]
  - Insomnia [Unknown]
  - Cough [Unknown]
  - Nasopharyngitis [Recovering/Resolving]
  - Malaise [Unknown]
  - Aphonia [Not Recovered/Not Resolved]
  - Asthenia [Unknown]

NARRATIVE: CASE EVENT DATE: 20220526
